FAERS Safety Report 6120954-5 (Version None)
Quarter: 2009Q1

REPORT INFORMATION
  Report Type: 
  Country: None (occurrence: None)
  Receive Date: 20090312
  Receipt Date: 20090312
  Transmission Date: 20090719
  Serious: No
  Sender: FDA-Public Use
  Company Number: None

PATIENT
  Age: 20 Year
  Sex: Male
  Weight: 71.4 kg

DRUGS (6)
  1. GEODON [Suspect]
     Indication: AGGRESSION
     Dosage: 10MG ONCE IM ONCE
     Route: 030
     Dates: start: 20090119, end: 20090119
  2. GEODON [Suspect]
     Indication: SCHIZOPHRENIA
     Dosage: 10MG ONCE IM ONCE
     Route: 030
     Dates: start: 20090119, end: 20090119
  3. ZOFRAN [Concomitant]
  4. SODIUM CHLORIDE [Concomitant]
  5. PEPCID [Concomitant]
  6. ATIVAN [Concomitant]

REACTIONS (2)
  - BRADYCARDIA [None]
  - ELECTROCARDIOGRAM QT PROLONGED [None]
